FAERS Safety Report 17127028 (Version 1)
Quarter: 2019Q4

REPORT INFORMATION
  Report Type: Spontaneous
  Country: IT (occurrence: IT)
  Receive Date: 20191209
  Receipt Date: 20191209
  Transmission Date: 20200122
  Serious: Yes (Other)
  Sender: FDA-Public Use
  Company Number: IT-SUN PHARMACEUTICAL INDUSTRIES LTD-2019RR-230078

PATIENT
  Age: 76 Year
  Sex: Female

DRUGS (2)
  1. LENALIDOMIDE [Suspect]
     Active Substance: LENALIDOMIDE
     Indication: PLASMA CELL MYELOMA
     Dosage: NINE INDUCTION CYCLES
     Route: 065
  2. DEXAMETHASONE. [Suspect]
     Active Substance: DEXAMETHASONE
     Indication: PLASMA CELL MYELOMA
     Dosage: NINE INDUCTION CYCLES
     Route: 065

REACTIONS (6)
  - Disturbance in attention [Unknown]
  - Executive dysfunction [Unknown]
  - Acute kidney injury [Unknown]
  - Amnesia [Unknown]
  - Confusional state [Unknown]
  - Loss of personal independence in daily activities [Unknown]
